FAERS Safety Report 4710369-6 (Version None)
Quarter: 2005Q3

REPORT INFORMATION
  Report Type: 
  Country: None (occurrence: None)
  Receive Date: 20050707
  Receipt Date: 20050628
  Transmission Date: 20060218
  Serious: Yes (Other)
  Sender: FDA-Public Use
  Company Number: RENA-11100

PATIENT
  Age: 55 Year
  Sex: Male

DRUGS (12)
  1. RENAGEL [Suspect]
     Indication: HYPERPHOSPHATAEMIA
     Dosage: 1.5 G TID PO
     Route: 048
     Dates: start: 20030718, end: 20040409
  2. RENAGEL [Suspect]
     Indication: HYPERPHOSPHATAEMIA
     Dosage: 0.75 G TID PO
     Route: 048
     Dates: start: 20040519, end: 20040625
  3. RENAGEL [Suspect]
     Indication: HYPERPHOSPHATAEMIA
     Dosage: 0.5 G DAILY PO
     Route: 048
     Dates: start: 20040813, end: 20040101
  4. RENAGEL [Suspect]
     Indication: HYPERPHOSPHATAEMIA
     Dosage: 0.75 G DAILY PO
     Route: 048
     Dates: start: 20040101, end: 20040101
  5. EPOGEN [Concomitant]
  6. CALCIUM  CARBONATE [Concomitant]
  7. REBAMIPIDE [Concomitant]
  8. FAMOTIDINE [Concomitant]
  9. CARTEOLOL HCL [Concomitant]
  10. EVIPROSTAT [Concomitant]
  11. LASIX [Concomitant]
  12. KETOPROFEN [Concomitant]

REACTIONS (15)
  - ARTERIOSCLEROSIS [None]
  - ARTHRALGIA [None]
  - ATHEROSCLEROSIS OBLITERANS [None]
  - BACK PAIN [None]
  - BLOOD CREATINE PHOSPHOKINASE INCREASED [None]
  - CALCINOSIS [None]
  - CHILLBLAINS [None]
  - CONSTIPATION [None]
  - ERYTHEMA [None]
  - HYPOAESTHESIA [None]
  - MYALGIA [None]
  - PAIN [None]
  - PAIN IN EXTREMITY [None]
  - SPINAL DISORDER [None]
  - TENDON DISORDER [None]
